FAERS Safety Report 8302748-5 (Version None)
Quarter: 2012Q2

REPORT INFORMATION
  Report Type: 
  Country: None (occurrence: None)
  Receive Date: 20120420
  Receipt Date: 20120416
  Transmission Date: 20120825
  Serious: Yes (Hospitalization)
  Sender: FDA-Public Use
  Company Number: DE-ELI_LILLY_AND_COMPANY-DE201202000999

PATIENT
  Age: 60 Year
  Sex: Male
  Weight: 96.6 kg

DRUGS (2)
  1. METFORMIN HCL [Concomitant]
     Dosage: 1000 MG, UNK
  2. BYDUREON [Suspect]
     Indication: TYPE 2 DIABETES MELLITUS
     Dosage: 2 MG, WEEKLY (1/W)
     Route: 058
     Dates: start: 20111103, end: 20120304

REACTIONS (3)
  - GLYCOSYLATED HAEMOGLOBIN INCREASED [None]
  - INJECTION SITE NODULE [None]
  - BLOOD GLUCOSE INCREASED [None]
